FAERS Safety Report 5896940-7 (Version None)
Quarter: 2008Q3

REPORT INFORMATION
  Report Type: 
  Country: None (occurrence: None)
  Receive Date: 20080924
  Receipt Date: 20080109
  Transmission Date: 20090109
  Serious: No
  Sender: FDA-Public Use
  Company Number: US-ASTRAZENECA-2008UW01068

PATIENT

DRUGS (1)
  1. SEROQUEL XR [Suspect]

REACTIONS (1)
  - SLEEP DISORDER [None]
